FAERS Safety Report 18555553 (Version 4)
Quarter: 2022Q1

REPORT INFORMATION
  Report Type: Report from Study
  Country: CA (occurrence: CA)
  Receive Date: 20201127
  Receipt Date: 20220303
  Transmission Date: 20220424
  Serious: Yes (Hospitalization, Other)
  Sender: FDA-Public Use
  Company Number: CA-TAKEDA-2020TUS053401

PATIENT
  Age: 58 Year
  Sex: Male

DRUGS (1)
  1. BRIGATINIB [Suspect]
     Active Substance: BRIGATINIB
     Indication: Non-small cell lung cancer
     Dosage: 180 MILLIGRAM, QD
     Route: 048
     Dates: start: 20190506

REACTIONS (5)
  - Infection [Unknown]
  - Transient ischaemic attack [Unknown]
  - Fall [Unknown]
  - Hip fracture [Unknown]
  - SARS-CoV-2 test positive [Unknown]
